FAERS Safety Report 8495909-6 (Version None)
Quarter: 2012Q3

REPORT INFORMATION
  Report Type: 
  Country: None (occurrence: None)
  Receive Date: 20120709
  Receipt Date: 20120629
  Transmission Date: 20120928
  Serious: Yes (Death, Hospitalization)
  Sender: FDA-Public Use
  Company Number: US-GLAXOSMITHKLINE-A0808179A

PATIENT
  Age: 74 Year
  Sex: Female
  Weight: 99.8 kg

DRUGS (1)
  1. AVANDIA [Suspect]
     Indication: TYPE 2 DIABETES MELLITUS
     Dosage: 8MG PER DAY
     Dates: end: 20030502

REACTIONS (2)
  - MYOCARDIAL INFARCTION [None]
  - CARDIOGENIC SHOCK [None]
